FAERS Safety Report 19441685 (Version 1)
Quarter: 2021Q2

REPORT INFORMATION
  Report Type: Spontaneous
  Country: CA (occurrence: CA)
  Receive Date: 20210621
  Receipt Date: 20210621
  Transmission Date: 20210717
  Serious: Yes (Other)
  Sender: FDA-Public Use
  Company Number: CA-ROCHE-2854277

PATIENT
  Sex: Male
  Weight: 83 kg

DRUGS (6)
  1. BISOPROLOL [Concomitant]
     Active Substance: BISOPROLOL
  2. RITUXIMAB. [Suspect]
     Active Substance: RITUXIMAB
     Indication: VASCULITIS
     Route: 042
  3. ATORVASTATIN [Concomitant]
     Active Substance: ATORVASTATIN
     Route: 048
  4. ACETAMINOPHEN. [Concomitant]
     Active Substance: ACETAMINOPHEN
     Indication: PREMEDICATION
     Route: 048
  5. ATORVASTATIN [Concomitant]
     Active Substance: ATORVASTATIN
     Route: 065
  6. DIPHENHYDRAMINE HYDROCHLORIDE. [Concomitant]
     Active Substance: DIPHENHYDRAMINE HYDROCHLORIDE
     Indication: PREMEDICATION
     Route: 048

REACTIONS (1)
  - Lung disorder [Unknown]
